FAERS Safety Report 12924606 (Version 1)
Quarter: 2016Q4

REPORT INFORMATION
  Report Type: Spontaneous
  Country: US (occurrence: US)
  Receive Date: 20161109
  Receipt Date: 20161109
  Transmission Date: 20170207
  Serious: No
  Sender: FDA-Public Use
  Company Number: US-ELI_LILLY_AND_COMPANY-US201611001743

PATIENT
  Sex: Male

DRUGS (2)
  1. TRAJENTA [Concomitant]
     Active Substance: LINAGLIPTIN
     Dosage: UNK, UNKNOWN
     Route: 065
  2. TRULICITY [Suspect]
     Active Substance: DULAGLUTIDE
     Indication: TYPE 2 DIABETES MELLITUS
     Dosage: 0.75 MG, WEEKLY (1/W)
     Route: 065

REACTIONS (6)
  - Eructation [Unknown]
  - Flatulence [Unknown]
  - Abdominal distension [Unknown]
  - Muscle spasms [Unknown]
  - Abdominal pain [Unknown]
  - Nausea [Unknown]
